FAERS Safety Report 9134572 (Version 1)
Quarter: 2013Q1

REPORT INFORMATION
  Report Type: Spontaneous
  Country: MX (occurrence: MX)
  Receive Date: 20130304
  Receipt Date: 20130304
  Transmission Date: 20140127
  Serious: Yes (Other)
  Sender: FDA-Public Use
  Company Number: PHHY2013MX020307

PATIENT
  Age: 79 Year
  Sex: Female

DRUGS (1)
  1. EXFORGE [Suspect]
     Dosage: 1 DF (160/5MG), DAILY
     Route: 048
     Dates: start: 201010

REACTIONS (2)
  - Fall [Unknown]
  - Pelvic fracture [Recovering/Resolving]
